FAERS Safety Report 7124800-2 (Version None)
Quarter: 2010Q4

REPORT INFORMATION
  Report Type: 
  Country: None (occurrence: None)
  Receive Date: 20101123
  Receipt Date: 20101123
  Transmission Date: 20110411
  Serious: Yes (Other)
  Sender: FDA-Public Use
  Company Number: None

PATIENT
  Age: 43 Year
  Sex: Female
  Weight: 90.7194 kg

DRUGS (1)
  1. CYMBALTA [Suspect]
     Indication: FIBROMYALGIA
     Dosage: 30 MGS THEN GOING UP TO 60 MGS 1 X PER DAY
     Dates: start: 20101114, end: 20101116

REACTIONS (9)
  - ABASIA [None]
  - AMNESIA [None]
  - BLEPHAROSPASM [None]
  - CHILLS [None]
  - DYSARTHRIA [None]
  - HEADACHE [None]
  - IMPAIRED DRIVING ABILITY [None]
  - LOSS OF CONSCIOUSNESS [None]
  - POSTURE ABNORMAL [None]
